FAERS Safety Report 13167979 (Version 1)
Quarter: 2017Q1

REPORT INFORMATION
  Report Type: Spontaneous
  Country: US (occurrence: US)
  Receive Date: 20170131
  Receipt Date: 20170131
  Transmission Date: 20170428
  Serious: No
  Sender: FDA-Public Use
  Company Number: US-PFIZER INC-2016490342

PATIENT
  Age: 65 Year
  Sex: Male
  Weight: 96 kg

DRUGS (5)
  1. NEPHROCAPS [Concomitant]
     Active Substance: ASCORBIC ACID\BIOTIN\CYANOCOBALAMIN\FOLIC ACID\NIACIN\PANTOTHENIC ACID\PYRIDOXINE\RIBOFLAVIN\THIAMINE
     Dosage: 1 MG, DAILY
     Route: 048
  2. B12 PLUS [Concomitant]
     Dosage: 1 DF, DAILY (CYANOCOBALAMIN- COBAMAMIDE - 5,000-100 MCG)
     Route: 060
  3. LIPITOR [Concomitant]
     Active Substance: ATORVASTATIN CALCIUM
     Dosage: 20 MG, DAILY
  4. PROTONIX [Concomitant]
     Active Substance: PANTOPRAZOLE SODIUM
     Dosage: 40 MG, DAILY
     Route: 048
  5. SUTENT [Suspect]
     Active Substance: SUNITINIB MALATE
     Indication: METASTATIC RENAL CELL CARCINOMA
     Dosage: 37.5 MG, CYCLIC (2 WEEKS ON/1 WEEK OFF)
     Route: 048
     Dates: start: 20140909

REACTIONS (3)
  - Diarrhoea [Not Recovered/Not Resolved]
  - Scrotal ulcer [Unknown]
  - Dyspepsia [Not Recovered/Not Resolved]
